FAERS Safety Report 7736897-7 (Version None)
Quarter: 2011Q3

REPORT INFORMATION
  Report Type: 
  Country: None (occurrence: None)
  Receive Date: 20110908
  Receipt Date: 20110830
  Transmission Date: 20111222
  Serious: Yes (Other)
  Sender: FDA-Public Use
  Company Number: PHFR2011IE01832

PATIENT
  Sex: Male

DRUGS (1)
  1. CLOZAPINE [Suspect]
     Indication: SCHIZOPHRENIA
     Dosage: 250 MG / NOCTURNAL
     Route: 048
     Dates: start: 20060816

REACTIONS (5)
  - DRUG INTERACTION [None]
  - ORCHITIS [None]
  - EPIDIDYMAL INFECTION [None]
  - NEPHRITIS [None]
  - URINARY RETENTION [None]
